FAERS Safety Report 15506194 (Version 1)
Quarter: 2018Q4

REPORT INFORMATION
  Report Type: Spontaneous
  Country: DE (occurrence: DE)
  Receive Date: 20181016
  Receipt Date: 20181016
  Transmission Date: 20190205
  Serious: Yes (Other)
  Sender: FDA-Public Use
  Company Number: PHHY2018DE125073

PATIENT
  Age: 66 Year
  Sex: Female

DRUGS (4)
  1. OXALIPLATIN. [Suspect]
     Active Substance: OXALIPLATIN
     Indication: PANCREATIC CARCINOMA METASTATIC
     Dosage: UNK (85 MG/ME2 EVERY 2 WEEKS FOR 6 MONTHS)
     Route: 065
  2. IRINOTECAN [Concomitant]
     Active Substance: IRINOTECAN
     Indication: PANCREATIC CARCINOMA METASTATIC
     Dosage: UNK (180 MG/ME2; EVERY 2 WEEKS FOR 6 MONTHS)
     Route: 065
  3. FLUOROURACIL. [Concomitant]
     Active Substance: FLUOROURACIL
     Indication: PANCREATIC CARCINOMA METASTATIC
     Dosage: UNK (2,400 MG/ME2 OVER 48 HOURS; EVERY 2 WEEKS FOR 6 MONTHS)
     Route: 065
  4. LEUCOVORIN. [Concomitant]
     Active Substance: LEUCOVORIN
     Indication: PANCREATIC CARCINOMA METASTATIC
     Dosage: UNK (180 MG/ME2;EVERY 2 WEEKS FOR 6 MONTHS)
     Route: 065

REACTIONS (1)
  - Neuropathy peripheral [Unknown]
